FAERS Safety Report 5767835-4 (Version None)
Quarter: 2008Q2

REPORT INFORMATION
  Report Type: 
  Country: None (occurrence: None)
  Receive Date: 20080612
  Receipt Date: 20080607
  Transmission Date: 20081010
  Serious: Yes (Hospitalization)
  Sender: FDA-Public Use
  Company Number: PHHO2008DE07199

PATIENT
  Sex: Male
  Weight: 86 kg

DRUGS (2)
  1. ERL 080A ERL+TAB [Suspect]
     Indication: RENAL TRANSPLANT
     Dosage: 2160 MG, DAILY
     Route: 048
     Dates: start: 20071206, end: 20080101
  2. ERL 080A ERL+TAB [Suspect]
     Dosage: 1440 MG, DAILY
     Route: 048
     Dates: start: 20080102

REACTIONS (4)
  - BLOOD CREATININE INCREASED [None]
  - DEHYDRATION [None]
  - DIARRHOEA [None]
  - RENAL FAILURE ACUTE [None]
